FAERS Safety Report 22007068 (Version 1)
Quarter: 2023Q1

REPORT INFORMATION
  Report Type: Report from Study
  Country: CA (occurrence: CA)
  Receive Date: 20230217
  Receipt Date: 20230217
  Transmission Date: 20230418
  Serious: Yes (Other)
  Sender: FDA-Public Use
  Company Number: CA-002147023-NVSC2023CA030968

PATIENT
  Sex: Male
  Weight: 108 kg

DRUGS (1)
  1. PIRFENIDONE [Suspect]
     Active Substance: PIRFENIDONE
     Indication: Idiopathic pulmonary fibrosis
     Dosage: 2403 MG
     Route: 048

REACTIONS (10)
  - Bronchiectasis [Unknown]
  - Interstitial lung disease [Unknown]
  - Pulmonary arterial hypertension [Unknown]
  - Pulmonary artery dilatation [Unknown]
  - Pulmonary fibrosis [Unknown]
  - Pulmonary septal thickening [Unknown]
  - Pulmonary calcification [Unknown]
  - Hepatic lesion [Unknown]
  - Diverticulum intestinal [Unknown]
  - Respiratory tract infection [Unknown]
